FAERS Safety Report 9198957 (Version 1)
Quarter: 2013Q1

REPORT INFORMATION
  Report Type: Spontaneous
  Country: US (occurrence: None)
  Receive Date: 20130325
  Receipt Date: 20130325
  Transmission Date: 20140127
  Serious: No
  Sender: FDA-Public Use
  Company Number: 2012US-004520

PATIENT
  Sex: Male
  Weight: 57.5 kg

DRUGS (2)
  1. OMONTYS (PEGINESATIDE) SOLUTION FOR INJECTION [Suspect]
     Indication: NEPHROGENIC ANAEMIA
     Route: 058
     Dates: start: 20121120, end: 20121120
  2. TARCEVA (ERLOTINIB HYDROCHLORIDE) TABLET [Suspect]

REACTIONS (2)
  - No therapeutic response [None]
  - Haemoglobin decreased [None]
